FAERS Safety Report 8385748-9 (Version None)
Quarter: 2012Q2

REPORT INFORMATION
  Report Type: 
  Country: None (occurrence: None)
  Receive Date: 20120525
  Receipt Date: 20120515
  Transmission Date: 20120825
  Serious: Yes (Hospitalization)
  Sender: FDA-Public Use
  Company Number: JP-VERTEX PHARMACEUTICALS INC.-AE-2012-006989

PATIENT
  Sex: Female

DRUGS (16)
  1. PEGASYS [Concomitant]
     Indication: HEPATITIS C
     Route: 051
     Dates: end: 20120511
  2. OLOPATADINE HCL [Concomitant]
  3. VX-950 [Suspect]
     Indication: HEPATITIS C
     Route: 048
     Dates: start: 20120313, end: 20120511
  4. RIBAVIRIN [Concomitant]
     Indication: HEPATITIS C
     Route: 048
     Dates: end: 20120511
  5. CLOBETASOL PROPIONATE [Concomitant]
  6. DIOVAN [Concomitant]
  7. ISOSORBIDE DINITRATE [Concomitant]
  8. EPEL [Concomitant]
  9. NEXIUM [Concomitant]
  10. MECOBALAMIN [Concomitant]
  11. XYZAL [Concomitant]
  12. REBAMIPIDE [Concomitant]
  13. TATHION [Concomitant]
  14. EPINASTINE HYDROCHLORIDE [Concomitant]
  15. ADENOSINE [Concomitant]
  16. MERISLON [Concomitant]

REACTIONS (1)
  - DRUG ERUPTION [None]
